FAERS Safety Report 8352578-3 (Version None)
Quarter: 2012Q2

REPORT INFORMATION
  Report Type: 
  Country: None (occurrence: None)
  Receive Date: 20120511
  Receipt Date: 20120305
  Transmission Date: 20120825
  Serious: No
  Sender: FDA-Public Use
  Company Number: US-COVIDIEN/TYCO HEALTHCARE/MALLINCKRODT-T201200825

PATIENT
  Sex: Female
  Weight: 62.585 kg

DRUGS (14)
  1. PROPRANOLOL [Concomitant]
     Indication: HYPERTENSION
     Dosage: UNK
  2. CYMBALTA [Concomitant]
     Indication: FIBROMYALGIA
     Dosage: UNK
  3. INDAPAMIDE [Concomitant]
     Dosage: UNK
  4. METOCARBAMOL [Concomitant]
     Indication: MUSCLE SPASMS
     Dosage: UNK
  5. FENTANYL-100 [Suspect]
     Indication: PAIN
     Dosage: 25 UG/HR Q 3 DAYS
     Route: 062
     Dates: start: 20120303
  6. VITAMIN D [Concomitant]
     Indication: SUPPLEMENTATION THERAPY
     Dosage: UNK
  7. ZOLPIDEM [Concomitant]
     Indication: SLEEP DISORDER
     Dosage: UNK
  8. NEXIUM [Concomitant]
     Indication: GASTROOESOPHAGEAL REFLUX DISEASE
     Dosage: UNK
  9. CELEBREX [Concomitant]
     Indication: ARTHRITIS
     Dosage: UNK
  10. QUALAQUIN [Concomitant]
     Indication: MUSCLE SPASMS
     Dosage: UNK
  11. PLAVIX [Concomitant]
     Indication: ANTICOAGULANT THERAPY
     Dosage: UNK
  12. CALCIUM [Concomitant]
     Indication: SUPPLEMENTATION THERAPY
     Dosage: UNK
  13. FISH OIL [Concomitant]
     Indication: SUPPLEMENTATION THERAPY
     Dosage: UNK
  14. MAGNESIUM [Concomitant]
     Indication: SUPPLEMENTATION THERAPY
     Dosage: UNK

REACTIONS (3)
  - PAIN [None]
  - INAPPROPRIATE SCHEDULE OF DRUG ADMINISTRATION [None]
  - DRUG INEFFECTIVE [None]
